FAERS Safety Report 14289556 (Version 1)
Quarter: 2017Q4

REPORT INFORMATION
  Report Type: Spontaneous
  Country: CH (occurrence: CH)
  Receive Date: 20171214
  Receipt Date: 20171214
  Transmission Date: 20180321
  Serious: Yes (Life-Threatening, Hospitalization)
  Sender: FDA-Public Use
  Company Number: PHHY2017CH180406

PATIENT
  Age: 47 Year
  Sex: Male

DRUGS (15)
  1. CLOPIN (CLOZAPINE) [Interacting]
     Active Substance: CLOZAPINE
     Indication: SCHIZOPHRENIA
     Dosage: 100 MG, Q12H (1-0-1.25-0)
     Route: 048
     Dates: start: 20161215, end: 20170501
  2. ORFIRIL [Suspect]
     Active Substance: VALPROATE SODIUM
     Indication: SCHIZOPHRENIA
     Dosage: 1 G, Q12H
     Route: 048
     Dates: start: 20120821, end: 20170501
  3. MUCOFLUID (ACETYLCYSTEINE) [Suspect]
     Active Substance: ACETYLCYSTEINE
     Indication: PRODUCT USED FOR UNKNOWN INDICATION
     Dosage: 600 MG, QD
     Route: 048
     Dates: start: 20160324, end: 20170501
  4. ALLOPUR [Interacting]
     Active Substance: ALLOPURINOL
     Indication: PRODUCT USED FOR UNKNOWN INDICATION
     Dosage: 150 MG, QD
     Route: 048
     Dates: start: 20120821, end: 20170501
  5. ROCEPHIN [Concomitant]
     Active Substance: CEFTRIAXONE SODIUM
     Indication: ANTIBIOTIC THERAPY
     Dosage: 2 G, QD
     Route: 041
     Dates: start: 20170430, end: 20170430
  6. LISITRIL [Suspect]
     Active Substance: LISINOPRIL
     Indication: HYPERTENSION
     Dosage: 2.5 MG, QD
     Route: 048
     Dates: start: 20170117, end: 20170501
  7. NOZINAN [Suspect]
     Active Substance: LEVOMEPROMAZINE
     Indication: SCHIZOPHRENIA
     Dosage: 200 MG, QD
     Route: 048
     Dates: start: 20170411, end: 20170501
  8. HALDOL [Suspect]
     Active Substance: HALOPERIDOL
     Indication: SCHIZOPHRENIA
     Dosage: 15 MG, QD (0.5-0-1-0)
     Route: 048
  9. VITAMIN D3 WILD [Concomitant]
     Active Substance: CHOLECALCIFEROL
     Indication: PRODUCT USED FOR UNKNOWN INDICATION
     Dosage: 21 GTT, QD
     Route: 048
     Dates: start: 20170117, end: 20170501
  10. PRAVASTATIN. [Concomitant]
     Active Substance: PRAVASTATIN
     Indication: PRODUCT USED FOR UNKNOWN INDICATION
     Dosage: 20 MG, QD (0-0-1-0)
     Route: 048
     Dates: start: 20170117
  11. LAXOBERON [Concomitant]
     Active Substance: SODIUM PICOSULFATE
     Indication: CONSTIPATION
     Dosage: 5 GTT, QD (0-0-1-0)
     Route: 048
     Dates: start: 20170427, end: 20170501
  12. ACTOS [Concomitant]
     Active Substance: PIOGLITAZONE HYDROCHLORIDE
     Indication: TYPE 2 DIABETES MELLITUS
     Dosage: 45 MG, QD (0-0-1-0)
     Route: 048
     Dates: start: 20160229, end: 20170501
  13. BELOZOK [Interacting]
     Active Substance: METOPROLOL SUCCINATE
     Indication: HYPERTENSION
     Dosage: 25 MG, QD
     Route: 048
     Dates: start: 20170125, end: 20170501
  14. CLOPIXOL [Suspect]
     Active Substance: ZUCLOPENTHIXOL ACETATE
     Indication: SCHIZOPHRENIA
     Dosage: 20 ML, QD
     Route: 048
     Dates: start: 20161215, end: 20170501
  15. NEPHROTRANS [Concomitant]
     Active Substance: SODIUM BICARBONATE
     Indication: PRODUCT USED FOR UNKNOWN INDICATION
     Dosage: 1 G, QID
     Route: 048
     Dates: start: 20150211

REACTIONS (11)
  - Arrhythmia [Recovered/Resolved]
  - Pneumonia [None]
  - Hypoxia [None]
  - Tachycardia [None]
  - Nephrolithiasis [None]
  - Mechanical ileus [None]
  - Hypotension [None]
  - Bradycardia [None]
  - Chronic kidney disease [None]
  - Drug interaction [Unknown]
  - Abdominal hernia [None]

NARRATIVE: CASE EVENT DATE: 2017
